FAERS Safety Report 7259300-2 (Version None)
Quarter: 2011Q1

REPORT INFORMATION
  Report Type: 
  Country: None (occurrence: None)
  Receive Date: 20110129
  Receipt Date: 20100821
  Transmission Date: 20110831
  Serious: No
  Sender: FDA-Public Use
  Company Number: US-ABBOTT-10P-163-0665452-00

PATIENT
  Age: 58 Year
  Sex: Male

DRUGS (8)
  1. HUMIRA [Suspect]
  2. HUMIRA [Suspect]
     Indication: CROHN'S DISEASE
     Dosage: 160 MG LOADING DOSE
     Dates: start: 20100820, end: 20100820
  3. ENTOCORT EC [Concomitant]
     Indication: CROHN'S DISEASE
  4. IMURAN [Concomitant]
     Indication: CROHN'S DISEASE
  5. WELCHOL [Concomitant]
     Indication: DIARRHOEA
  6. ALLEGRA [Concomitant]
     Indication: HYPERSENSITIVITY
  7. METHOCARBAMOL [Concomitant]
     Indication: MUSCLE RELAXANT THERAPY
  8. PENTASA [Concomitant]
     Indication: CROHN'S DISEASE

REACTIONS (2)
  - SENSATION OF HEAVINESS [None]
  - FATIGUE [None]
